FAERS Safety Report 12370280 (Version 5)
Quarter: 2016Q3

REPORT INFORMATION
  Report Type: Report from Study
  Country: US (occurrence: US)
  Receive Date: 20160516
  Receipt Date: 20160810
  Transmission Date: 20161109
  Serious: Yes (Hospitalization, Other)
  Sender: FDA-Public Use
  Company Number: US-BRISTOL-MYERS SQUIBB COMPANY-BMS-2016-036713

PATIENT
  Age: 64 Year
  Sex: Male
  Weight: 87.5 kg

DRUGS (11)
  1. ADEMPAS [Suspect]
     Active Substance: RIOCIGUAT
     Indication: LUNG NEOPLASM MALIGNANT
     Dosage: 2.5 MG, UNK
     Route: 065
     Dates: end: 20160418
  2. NIVOLUMAB [Suspect]
     Active Substance: NIVOLUMAB
     Indication: LUNG NEOPLASM MALIGNANT
     Route: 065
  3. TYVASO [Suspect]
     Active Substance: TREPROSTINIL
     Dosage: 30 ?G, QID
     Route: 050
  4. LETAIRIS [Suspect]
     Active Substance: AMBRISENTAN
     Dosage: UNK
     Route: 065
  5. TYVASO [Suspect]
     Active Substance: TREPROSTINIL
     Dosage: 18 ?G, QID
     Route: 050
  6. SN-15 [Suspect]
     Active Substance: NIMESULIDE\SERRAPEPTASE
     Indication: LUNG NEOPLASM MALIGNANT
     Route: 065
  7. LETAIRIS [Suspect]
     Active Substance: AMBRISENTAN
     Dosage: UNK
     Route: 065
  8. LOVENOX [Concomitant]
     Active Substance: ENOXAPARIN SODIUM
     Indication: PRODUCT USED FOR UNKNOWN INDICATION
     Route: 065
  9. TYVASO [Suspect]
     Active Substance: TREPROSTINIL
     Indication: PULMONARY ARTERIAL HYPERTENSION
     Dosage: 1 DF, QID
     Route: 050
     Dates: start: 20160415, end: 20160518
  10. TYVASO [Suspect]
     Active Substance: TREPROSTINIL
     Dosage: 24 ?G, QID
     Route: 050
  11. LETAIRIS [Suspect]
     Active Substance: AMBRISENTAN
     Indication: LUNG NEOPLASM MALIGNANT
     Dosage: 10 MG, QD
     Route: 065
     Dates: start: 20151223

REACTIONS (17)
  - Asthenia [Unknown]
  - Dyspnoea [Unknown]
  - Nausea [Not Recovered/Not Resolved]
  - Pulmonary oedema [Unknown]
  - Dyspepsia [Recovered/Resolved]
  - Platelet count decreased [Unknown]
  - White blood cell count decreased [Unknown]
  - Feeling abnormal [Unknown]
  - Weight decreased [Unknown]
  - Lung carcinoma cell type unspecified stage IV [Unknown]
  - Dizziness [Unknown]
  - Malignant pleural effusion [Unknown]
  - Chest discomfort [Unknown]
  - Aspiration pleural cavity [Unknown]
  - Therapy non-responder [Unknown]
  - Decreased appetite [Unknown]
  - Hypotension [Unknown]

NARRATIVE: CASE EVENT DATE: 201604
